FAERS Safety Report 5951163-8 (Version None)
Quarter: 2008Q4

REPORT INFORMATION
  Report Type: 
  Country: None (occurrence: None)
  Receive Date: 20081112
  Receipt Date: 20081112
  Transmission Date: 20090506
  Serious: Yes (Other)
  Sender: FDA-Public Use
  Company Number: None

PATIENT
  Age: 43 Year
  Sex: Female
  Weight: 86.1834 kg

DRUGS (2)
  1. AMITRIPTYLINE HCL [Suspect]
  2. CYMBALTA [Suspect]

REACTIONS (2)
  - ANAPHYLACTIC REACTION [None]
  - ASTHMA [None]
